FAERS Safety Report 8486571-7 (Version None)
Quarter: 2012Q3

REPORT INFORMATION
  Report Type: 
  Country: None (occurrence: None)
  Receive Date: 20120703
  Receipt Date: 20120625
  Transmission Date: 20120928
  Serious: Yes (Other)
  Sender: FDA-Public Use
  Company Number: US-FRI-1000036654

PATIENT
  Age: 54 Year
  Sex: Male
  Weight: 95 kg

DRUGS (6)
  1. CYTOMEL [Suspect]
     Indication: GENERALISED RESISTANCE TO THYROID HORMONE
     Dosage: 100 MCG
  2. LEVOTHROID [Suspect]
     Indication: GENERALISED RESISTANCE TO THYROID HORMONE
     Dosage: 200 MCG
  3. ALBUTEROL [Concomitant]
     Dosage: AS NEEDED
  4. VERAPAMIL [Concomitant]
  5. THEOPHYLLINE [Concomitant]
  6. TERAZOSIN HCL [Concomitant]

REACTIONS (1)
  - ATRIAL FIBRILLATION [None]
